FAERS Safety Report 14633151 (Version 1)
Quarter: 2018Q1

REPORT INFORMATION
  Report Type: Spontaneous
  Country: US (occurrence: US)
  Receive Date: 20180313
  Receipt Date: 20180313
  Transmission Date: 20180509
  Serious: No
  Sender: FDA-Public Use
  Company Number: US-SA-2017SA076238

PATIENT
  Age: 15 Year
  Sex: Female

DRUGS (3)
  1. LEUKINE [Suspect]
     Active Substance: SARGRAMOSTIM
     Indication: NEUTROPENIA
     Route: 058
     Dates: start: 20170417, end: 20170418
  2. REMICADE [Concomitant]
     Active Substance: INFLIXIMAB
  3. NEUPOGEN [Concomitant]
     Active Substance: FILGRASTIM
     Indication: NEUTROPENIA

REACTIONS (9)
  - Asthenia [Unknown]
  - Throat tightness [Unknown]
  - Pyrexia [Recovered/Resolved]
  - Abdominal pain upper [Unknown]
  - Fatigue [Unknown]
  - Oral pruritus [Unknown]
  - Pallor [Unknown]
  - Pruritus [Unknown]
  - Malaise [Unknown]

NARRATIVE: CASE EVENT DATE: 201704
